FAERS Safety Report 25162748 (Version 1)
Quarter: 2025Q2

REPORT INFORMATION
  Report Type: Spontaneous
  Country: FR (occurrence: FR)
  Receive Date: 20250404
  Receipt Date: 20250404
  Transmission Date: 20250716
  Serious: Yes (Hospitalization, Other)
  Sender: MYLAN
  Company Number: None

PATIENT
  Age: 21 Year
  Sex: Male

DRUGS (16)
  1. LYRICA [Suspect]
     Active Substance: PREGABALIN
     Indication: Product used for unknown indication
  2. LYRICA [Suspect]
     Active Substance: PREGABALIN
     Route: 065
  3. LYRICA [Suspect]
     Active Substance: PREGABALIN
     Route: 065
  4. LYRICA [Suspect]
     Active Substance: PREGABALIN
  5. CANNABIS SATIVA SUBSP. INDICA TOP [Suspect]
     Active Substance: CANNABIS SATIVA SUBSP. INDICA TOP
     Indication: Product used for unknown indication
  6. CANNABIS SATIVA SUBSP. INDICA TOP [Suspect]
     Active Substance: CANNABIS SATIVA SUBSP. INDICA TOP
     Route: 065
  7. CANNABIS SATIVA SUBSP. INDICA TOP [Suspect]
     Active Substance: CANNABIS SATIVA SUBSP. INDICA TOP
     Route: 065
  8. CANNABIS SATIVA SUBSP. INDICA TOP [Suspect]
     Active Substance: CANNABIS SATIVA SUBSP. INDICA TOP
  9. MIDOMAFETAMINE [Suspect]
     Active Substance: MIDOMAFETAMINE
     Indication: Product used for unknown indication
  10. MIDOMAFETAMINE [Suspect]
     Active Substance: MIDOMAFETAMINE
     Route: 065
  11. MIDOMAFETAMINE [Suspect]
     Active Substance: MIDOMAFETAMINE
     Route: 065
  12. MIDOMAFETAMINE [Suspect]
     Active Substance: MIDOMAFETAMINE
  13. CLONAZEPAM [Suspect]
     Active Substance: CLONAZEPAM
     Indication: Product used for unknown indication
  14. CLONAZEPAM [Suspect]
     Active Substance: CLONAZEPAM
     Route: 065
  15. CLONAZEPAM [Suspect]
     Active Substance: CLONAZEPAM
     Route: 065
  16. CLONAZEPAM [Suspect]
     Active Substance: CLONAZEPAM

REACTIONS (4)
  - Suicidal ideation [Unknown]
  - Agitation [Unknown]
  - Substance use disorder [Unknown]
  - Drug use disorder [Unknown]

NARRATIVE: CASE EVENT DATE: 20241217
